FAERS Safety Report 6109399-1 (Version None)
Quarter: 2009Q1

REPORT INFORMATION
  Report Type: 
  Country: None (occurrence: None)
  Receive Date: 20090310
  Receipt Date: 20090226
  Transmission Date: 20090719
  Serious: Yes (Hospitalization)
  Sender: FDA-Public Use
  Company Number: B0399387F

PATIENT
  Age: 64 Year
  Sex: Female

DRUGS (6)
  1. ROSIGLITAZONE [Suspect]
     Route: 048
     Dates: start: 20021105, end: 20060207
  2. SIOFOR [Concomitant]
     Route: 048
     Dates: start: 20020303
  3. DIABETON [Concomitant]
     Route: 048
     Dates: start: 20061002
  4. DIROTON [Concomitant]
     Dosage: 5MG PER DAY
     Route: 048
     Dates: start: 20070612
  5. NOVOLOG MIX 70/30 [Concomitant]
     Indication: DIABETES MELLITUS
     Route: 058
     Dates: start: 20051110
  6. SIMGAL [Concomitant]
     Dosage: 10MG PER DAY
     Route: 048
     Dates: start: 20050329

REACTIONS (5)
  - BLOOD GLUCOSE INCREASED [None]
  - DRY MOUTH [None]
  - HEADACHE [None]
  - HYPERTENSION [None]
  - THIRST [None]
